FAERS Safety Report 7988466-1 (Version None)
Quarter: 2011Q4

REPORT INFORMATION
  Report Type: 
  Country: None (occurrence: None)
  Receive Date: 20111216
  Receipt Date: 20111214
  Transmission Date: 20120403
  Serious: Yes (Hospitalization, Other)
  Sender: FDA-Public Use
  Company Number: JP-PFIZER INC-2011303682

PATIENT
  Age: 84 Year
  Sex: Female

DRUGS (1)
  1. DOXAZOSIN MESYLATE [Suspect]
     Indication: HYPERTENSION
     Dosage: 8 MG, UNK

REACTIONS (4)
  - FALL [None]
  - BRADYCARDIA [None]
  - SYNCOPE [None]
  - LOSS OF CONSCIOUSNESS [None]
